FAERS Safety Report 21176429 (Version 1)
Quarter: 2022Q3

REPORT INFORMATION
  Report Type: Spontaneous
  Country: ZA (occurrence: ZA)
  Receive Date: 20220805
  Receipt Date: 20220805
  Transmission Date: 20221027
  Serious: Yes (Death, Other)
  Sender: FDA-Public Use
  Company Number: ZA-LUNDBECK-DKLU3051039

PATIENT
  Age: 78 Year
  Sex: Male

DRUGS (9)
  1. BRINTELLIX [Suspect]
     Active Substance: VORTIOXETINE HYDROBROMIDE
     Indication: Depression
     Dosage: 10 MILLIGRAM
     Route: 048
     Dates: end: 202207
  2. CLOPIDOGREL [Concomitant]
     Active Substance: CLOPIDOGREL BISULFATE
     Indication: Anticoagulant therapy
     Dosage: 75 MILLIGRAM
     Route: 048
     Dates: end: 202207
  3. BUDESONIDE\FORMOTEROL [Concomitant]
     Active Substance: BUDESONIDE\FORMOTEROL
     Indication: Asthma
     Dosage: UNK
     Route: 055
     Dates: end: 202207
  4. ECOTRIN [Concomitant]
     Active Substance: ASPIRIN
     Indication: Anticoagulant therapy
     Dosage: 81 MILLIGRAM
     Route: 048
     Dates: end: 202207
  5. Spiractin [Concomitant]
     Indication: Hypertension
     Dosage: 25 MILLIGRAM
     Route: 048
     Dates: end: 202207
  6. CARVEDILOL [Concomitant]
     Active Substance: CARVEDILOL
     Indication: Hypertension
     Dosage: UNK
     Route: 048
     Dates: end: 202207
  7. PERINDOPRIL ERBUMINE [Concomitant]
     Active Substance: PERINDOPRIL ERBUMINE
     Indication: Hypertension
     Dosage: 4 MILLIGRAM
     Route: 048
     Dates: end: 202207
  8. ATORVASTATIN [Concomitant]
     Active Substance: ATORVASTATIN
     Indication: Blood cholesterol
     Dosage: 20 MILLIGRAM
     Route: 048
     Dates: end: 202207
  9. INSULIN LISPRO [Concomitant]
     Active Substance: INSULIN LISPRO
     Indication: Diabetes mellitus
     Dosage: UNK
     Route: 065
     Dates: end: 202207

REACTIONS (2)
  - Death [Fatal]
  - Myocardial infarction [Unknown]
